FAERS Safety Report 6988922-9 (Version None)
Quarter: 2010Q3

REPORT INFORMATION
  Report Type: 
  Country: None (occurrence: None)
  Receive Date: 20100916
  Receipt Date: 20090814
  Transmission Date: 20110219
  Serious: Yes (Other)
  Sender: FDA-Public Use
  Company Number: GB-PFIZER INC-2009233998

PATIENT
  Age: 60 Year
  Sex: Male

DRUGS (8)
  1. LYRICA [Suspect]
     Indication: PAIN
     Dosage: UNK
  2. VIAGRA [Suspect]
     Indication: ERECTILE DYSFUNCTION
     Dosage: 100 MG, UNK
     Route: 048
  3. DIAZEPAM [Suspect]
     Indication: PAIN
     Dosage: UNK
  4. NAPROXEN SODIUM [Concomitant]
     Indication: PAIN
  5. TRAMADOL [Concomitant]
     Indication: PAIN
     Dosage: UNK
  6. PARACETAMOL [Concomitant]
     Indication: PAIN
     Dosage: UNK
  7. LOSARTAN [Concomitant]
     Indication: HYPERTENSION
     Dosage: DAILY
  8. KETOCONAZOLE [Suspect]

REACTIONS (5)
  - DRUG INEFFECTIVE FOR UNAPPROVED INDICATION [None]
  - ERECTILE DYSFUNCTION [None]
  - NERVE COMPRESSION [None]
  - PAIN [None]
  - SURGERY [None]
